FAERS Safety Report 7239575-6 (Version None)
Quarter: 2011Q1

REPORT INFORMATION
  Report Type: 
  Country: None (occurrence: None)
  Receive Date: 20110121
  Receipt Date: 20110116
  Transmission Date: 20110831
  Serious: No
  Sender: FDA-Public Use
  Company Number: US-B.I. PHARMACEUTICALS,INC./RIDGEFIELD-2011-BP-01299BP

PATIENT
  Sex: Male

DRUGS (10)
  1. PRADAXA [Suspect]
     Indication: ATRIAL FIBRILLATION
     Dosage: 300 MG
     Route: 048
     Dates: start: 20110114
  2. MOBIC [Concomitant]
     Indication: ARTHRITIS
     Dosage: 7.5 MG
  3. NEXIUM [Concomitant]
     Indication: GASTROOESOPHAGEAL REFLUX DISEASE
     Dosage: 40 MG
  4. CLARITIN [Concomitant]
     Indication: HYPERSENSITIVITY
     Dosage: PRN
  5. HYZAAR [Concomitant]
     Indication: POLYURIA
     Dosage: 100/25
  6. DIGOXIN [Concomitant]
     Indication: CARDIAC DISORDER
     Dosage: 0.25 MG
  7. ALBUTEROL [Concomitant]
     Indication: ASTHMA
     Dosage: PRN
     Route: 055
  8. NORVASC [Concomitant]
     Indication: CARDIAC DISORDER
     Dosage: 5 MG
  9. MAGNESIUM [Concomitant]
     Indication: MINERAL SUPPLEMENTATION
     Dosage: DAILY
  10. CEREFOLIN [Concomitant]
     Indication: MEDICAL DIET
     Dosage: 5.6 MG

REACTIONS (1)
  - TOOTHACHE [None]
